FAERS Safety Report 22016565 (Version 1)
Quarter: 2023Q1

REPORT INFORMATION
  Report Type: Spontaneous
  Country: DK (occurrence: DK)
  Receive Date: 20230221
  Receipt Date: 20230221
  Transmission Date: 20230417
  Serious: Yes (Other)
  Sender: FDA-Public Use
  Company Number: DK-002147023-NVSC2023DK028777

PATIENT
  Age: 54 Year
  Sex: Male

DRUGS (2)
  1. DICLOXACILLIN SODIUM [Suspect]
     Active Substance: DICLOXACILLIN SODIUM
     Indication: Lymphadenitis
     Dosage: UNK (500 MG OR 800 MG, 2 TABLETS 4 TIMES DAILY)
     Route: 065
  2. DICLOXACILLIN SODIUM [Suspect]
     Active Substance: DICLOXACILLIN SODIUM
     Dosage: 500 MG (50 PCS)
     Route: 065
     Dates: start: 20230111

REACTIONS (16)
  - Product contamination microbial [Unknown]
  - Influenza like illness [Unknown]
  - Illness [Unknown]
  - Flushing [Unknown]
  - Feeling abnormal [Unknown]
  - Discomfort [Unknown]
  - Sleep disorder [Unknown]
  - Tremor [Unknown]
  - Rash [Unknown]
  - Nausea [Unknown]
  - Dizziness [Unknown]
  - Hypersensitivity [Unknown]
  - Scab [Unknown]
  - Pruritus [Unknown]
  - Malaise [Unknown]
  - Drug ineffective [Unknown]

NARRATIVE: CASE EVENT DATE: 20230113
